FAERS Safety Report 19112699 (Version 1)
Quarter: 2021Q2

REPORT INFORMATION
  Report Type: Spontaneous
  Country: US (occurrence: US)
  Receive Date: 20210409
  Receipt Date: 20210409
  Transmission Date: 20210717
  Serious: No
  Sender: FDA-Public Use
  Company Number: US-ALLERGAN-2040267US

PATIENT
  Age: 47 Year
  Sex: Female

DRUGS (3)
  1. CYTOTEC [Concomitant]
     Active Substance: MISOPROSTOL
     Dosage: 2 TABLETS ORALLY 6 HOURS PRIOR TO LILETTA INSERTION
     Route: 048
     Dates: start: 20200722, end: 20200722
  2. LIDOCAINE. [Concomitant]
     Active Substance: LIDOCAINE
     Dosage: PRIOR TO INSERTION
     Route: 067
     Dates: start: 20200722, end: 20200722
  3. LILETTA [Suspect]
     Active Substance: LEVONORGESTREL
     Indication: HEAVY MENSTRUAL BLEEDING
     Dosage: 52 MG, SINGLE
     Route: 015
     Dates: start: 20200722, end: 20201023

REACTIONS (2)
  - Off label use [Unknown]
  - Device expulsion [Recovered/Resolved]

NARRATIVE: CASE EVENT DATE: 20201015
